FAERS Safety Report 23339355 (Version 4)
Quarter: 2024Q1

REPORT INFORMATION
  Report Type: Spontaneous
  Country: FR (occurrence: FR)
  Receive Date: 20231226
  Receipt Date: 20240221
  Transmission Date: 20240409
  Serious: Yes (Other)
  Sender: FDA-Public Use
  Company Number: FR-ROCHE-3434940

PATIENT
  Age: 7 Year
  Sex: Female
  Weight: 24.1 kg

DRUGS (33)
  1. CARBOPLATIN [Suspect]
     Active Substance: CARBOPLATIN
     Indication: B-cell lymphoma
     Dosage: 565 MG
     Route: 042
     Dates: start: 20230811
  2. CYTARABINE [Suspect]
     Active Substance: CYTARABINE
     Indication: B-cell lymphoma
     Dosage: 25 MG
     Route: 037
     Dates: start: 20230811
  3. METHOTREXATE SODIUM [Suspect]
     Active Substance: METHOTREXATE SODIUM
     Indication: B-cell lymphoma
     Dosage: 12 MG
     Dates: start: 20230811
  4. HYDROCORTISONE [Suspect]
     Active Substance: HYDROCORTISONE
     Indication: B-cell lymphoma
     Dosage: 7.5 MG, 1X/DAY
     Route: 048
     Dates: start: 20230405
  5. HYDROCORTISONE [Suspect]
     Active Substance: HYDROCORTISONE
     Dosage: 12 MG, 1X/DAY (START DATE OF MOST RECENT DOSE PRIOR TO SAE ONSET: 11AUG2023 )
     Dates: start: 20230811
  6. GLOFITAMAB [Suspect]
     Active Substance: GLOFITAMAB
     Indication: B-cell lymphoma
     Dosage: 3.5 MG (ON 28AUG2023 RECEIVED MOST RECENT DOSE OF STUDY DRUG PRIOR TO EVENT)
     Route: 042
     Dates: start: 20230828
  7. GLOFITAMAB [Suspect]
     Active Substance: GLOFITAMAB
     Dosage: 0.7 MG
     Route: 042
     Dates: start: 20230818
  8. OBINUTUZUMAB [Suspect]
     Active Substance: OBINUTUZUMAB
     Indication: B-cell lymphoma
     Dosage: 54 MG
     Route: 042
     Dates: start: 20230809
  9. OBINUTUZUMAB [Suspect]
     Active Substance: OBINUTUZUMAB
     Dosage: ON 10AUG2023 RECEIVED RECENT DOSE OF STUDY DRUG PRIOR TO EVENT.
     Route: 042
     Dates: start: 20230810
  10. ETOPOSIDE [Suspect]
     Active Substance: ETOPOSIDE
     Indication: B-cell lymphoma
     Dosage: 90 MG (ON 13AUG2023 RECEIVED MOST RECENT DOSE (90 MG) OF STUDY DRUG PRIOR TO EVENT)
     Route: 042
     Dates: start: 20230811
  11. MESNA [Suspect]
     Active Substance: MESNA
     Indication: B-cell lymphoma
     Dosage: 2120 MG
     Route: 042
     Dates: start: 20230811
  12. MESNA [Suspect]
     Active Substance: MESNA
     Dosage: 530 MG (ON 14AUG2023 RECEIVED MOST RECENT DOSE OF STUDY DRUG PRIOR TO EVENT 530 MG)
     Dates: start: 20230814
  13. LENOGRASTIM [Suspect]
     Active Substance: LENOGRASTIM
     Indication: B-cell lymphoma
     Dosage: 5 ?G
     Route: 042
     Dates: start: 20230814
  14. IFOSFAMIDE [Suspect]
     Active Substance: IFOSFAMIDE
     Indication: B-cell lymphoma
     Dosage: 2.67 G (ON 13AUG2023, RECEIVED MOST RECENT DOSE OF IFOSFAMIDE PRIOR TO EVENT)
     Route: 042
     Dates: start: 20230811
  15. HYDROCORTISONE [Concomitant]
     Active Substance: HYDROCORTISONE
     Dosage: 5 MG, 1X/DAY
     Route: 048
  16. OXYGEN [Concomitant]
     Active Substance: OXYGEN
     Dosage: UNK
  17. BACTRIM [Concomitant]
     Active Substance: SULFAMETHOXAZOLE\TRIMETHOPRIM
     Indication: Prophylaxis
     Dosage: 600 MG, 1X/DAY (3 TIMES/WEEK )
     Route: 048
     Dates: start: 202302, end: 20230907
  18. ACETAMINOPHEN [Concomitant]
     Active Substance: ACETAMINOPHEN
     Dosage: 350 MG, DAILY
     Route: 048
     Dates: start: 20230809, end: 20230810
  19. ACETAMINOPHEN [Concomitant]
     Active Substance: ACETAMINOPHEN
     Dosage: 350 MG, DAILY
     Route: 048
     Dates: start: 20230818, end: 20230818
  20. ACETAMINOPHEN [Concomitant]
     Active Substance: ACETAMINOPHEN
     Dosage: 350 MG, DAILY
     Route: 048
     Dates: start: 20230828, end: 20230828
  21. ATARAX [Concomitant]
     Active Substance: HYDROXYZINE HYDROCHLORIDE
     Indication: Anxiety
     Dosage: 20 MG, DAILY
     Route: 048
     Dates: start: 20230812, end: 20230818
  22. INTRATECT [Concomitant]
     Active Substance: HUMAN IMMUNOGLOBULIN G
     Dosage: 10 G, DAILY
     Route: 042
     Dates: start: 20230822, end: 20230822
  23. DEXAMETHASONE [Concomitant]
     Active Substance: DEXAMETHASONE
     Dosage: 12 MG, DAILY
     Route: 042
     Dates: start: 20230809, end: 20230810
  24. DEXAMETHASONE [Concomitant]
     Active Substance: DEXAMETHASONE
     Dosage: 12 MG, DAILY
     Route: 042
     Dates: start: 20230818, end: 20230818
  25. DEXAMETHASONE [Concomitant]
     Active Substance: DEXAMETHASONE
     Dosage: 10 MG, DAILY
     Route: 042
     Dates: start: 20230828, end: 20230828
  26. POLARAMINE [Concomitant]
     Active Substance: DEXCHLORPHENIRAMINE MALEATE
     Dosage: 5 MG, DAILY
     Route: 042
     Dates: start: 20230809, end: 20230810
  27. POLARAMINE [Concomitant]
     Active Substance: DEXCHLORPHENIRAMINE MALEATE
     Dosage: 5 MG, DAILY
     Route: 042
     Dates: start: 20230818, end: 20230818
  28. POLARAMINE [Concomitant]
     Active Substance: DEXCHLORPHENIRAMINE MALEATE
     Dosage: 5 MG, DAILY
     Route: 042
     Dates: start: 20230828, end: 20230828
  29. RASBURICASE [Concomitant]
     Active Substance: RASBURICASE
     Dosage: 4.7 MG, DAILY
     Route: 042
     Dates: start: 20230809, end: 20230810
  30. AMOXICILLIN [Concomitant]
     Active Substance: AMOXICILLIN
     Dosage: 2.25 G, DAILY
     Route: 048
     Dates: start: 20230822, end: 20230828
  31. DOLIPRANE [Concomitant]
     Active Substance: ACETAMINOPHEN
     Indication: Pain
     Dosage: 300 MG, 1X/DAY
     Route: 048
     Dates: start: 20230810, end: 20230813
  32. HALDOL [Concomitant]
     Active Substance: HALOPERIDOL
     Indication: Vomiting
     Dosage: 10 DROP, 1X/DAY
     Route: 048
     Dates: start: 20230811, end: 20230811
  33. ALOXI [Concomitant]
     Active Substance: PALONOSETRON HYDROCHLORIDE
     Indication: Vomiting
     Dosage: 236 ?G, 1X/DAY
     Route: 042
     Dates: start: 20230815

REACTIONS (2)
  - Cytokine release syndrome [Recovered/Resolved]
  - Off label use [Unknown]

NARRATIVE: CASE EVENT DATE: 20230811
